FAERS Safety Report 5833945-6 (Version None)
Quarter: 2008Q3

REPORT INFORMATION
  Report Type: 
  Country: None (occurrence: None)
  Receive Date: 20080805
  Receipt Date: 20080724
  Transmission Date: 20090109
  Serious: Yes (Hospitalization)
  Sender: FDA-Public Use
  Company Number: DE-ROCHE-577728

PATIENT
  Sex: Female

DRUGS (1)
  1. COPEGUS [Suspect]
     Indication: DRUG USE FOR UNKNOWN INDICATION
     Dosage: OVERDOSE OVERDOSE DATE REPORTED AS EITHER 23 OR 24 JULY 2008
     Route: 065
     Dates: start: 20080723

REACTIONS (2)
  - BRADYCARDIA [None]
  - OVERDOSE [None]
